FAERS Safety Report 4341482-3 (Version None)
Quarter: 2004Q2

REPORT INFORMATION
  Report Type: 
  Country: None (occurrence: None)
  Receive Date: 20040415
  Receipt Date: 20040405
  Transmission Date: 20050107
  Serious: Yes (Death)
  Sender: FDA-Public Use
  Company Number: 930812-107030646

PATIENT
  Age: 23 Year
  Sex: Male
  Weight: 136.0791 kg

DRUGS (4)
  1. HALDOL [Suspect]
     Indication: ADVERSE EVENT
     Dosage: 10 MG, 2 IN 1 DAY
  2. LITHIUM [Concomitant]
  3. CLONIDINE [Concomitant]
  4. CLONAZEPAM [Concomitant]

REACTIONS (1)
  - CARDIOMYOPATHY [None]
